FAERS Safety Report 8401049-4 (Version None)
Quarter: 2012Q2

REPORT INFORMATION
  Report Type: 
  Country: None (occurrence: None)
  Receive Date: 20120529
  Receipt Date: 20120529
  Transmission Date: 20120825
  Serious: No
  Sender: FDA-Public Use
  Company Number: None

PATIENT
  Sex: Male
  Weight: 72.7 kg

DRUGS (3)
  1. METHYLPHENIDATE [Suspect]
     Indication: MENTAL IMPAIRMENT
     Dosage: 54 MG 1 / DAY ORAL
     Route: 048
  2. METHYLPHENIDATE [Suspect]
     Indication: NARCOLEPSY
     Dosage: 54 MG 1 / DAY ORAL
     Route: 048
  3. METHYLPHENIDATE [Suspect]
     Indication: ATTENTION DEFICIT/HYPERACTIVITY DISORDER
     Dosage: 54 MG 1 / DAY ORAL
     Route: 048

REACTIONS (4)
  - PRODUCT QUALITY ISSUE [None]
  - PRODUCT SUBSTITUTION ISSUE [None]
  - DRUG EFFECT DECREASED [None]
  - PRODUCT COUNTERFEIT [None]
